FAERS Safety Report 5535342-X (Version None)
Quarter: 2007Q4

REPORT INFORMATION
  Report Type: 
  Country: None (occurrence: None)
  Receive Date: 20071206
  Receipt Date: 20071128
  Transmission Date: 20080405
  Serious: Yes (Hospitalization)
  Sender: FDA-Public Use
  Company Number: FR-PFIZER INC-2007100947

PATIENT
  Sex: Female

DRUGS (2)
  1. ZOLOFT [Suspect]
     Route: 048
     Dates: start: 20070630, end: 20070630
  2. MEPROBAMATE [Suspect]
     Route: 048
     Dates: start: 20070630, end: 20070630

REACTIONS (1)
  - DRUG TOXICITY [None]
